FAERS Safety Report 5644473-5 (Version None)
Quarter: 2008Q1

REPORT INFORMATION
  Report Type: 
  Country: None (occurrence: None)
  Receive Date: 20080229
  Receipt Date: 20070115
  Transmission Date: 20080703
  Serious: No
  Sender: FDA-Public Use
  Company Number: A0635695A

PATIENT
  Age: 84 Year
  Sex: Male

DRUGS (2)
  1. VALTREX [Suspect]
     Indication: HERPES ZOSTER
     Dosage: 1G THREE TIMES PER DAY
     Route: 048
     Dates: start: 20070101
  2. CARDIAC MEDICATION [Concomitant]

REACTIONS (1)
  - DRUG INEFFECTIVE [None]
